FAERS Safety Report 4582706-7 (Version None)
Quarter: 2005Q1

REPORT INFORMATION
  Report Type: 
  Country: None (occurrence: None)
  Receive Date: 20050127
  Receipt Date: 20050111
  Transmission Date: 20050727
  Serious: No
  Sender: FDA-Public Use
  Company Number: 2004UW12058

PATIENT
  Age: 37 Year
  Sex: Male
  Weight: 82.1011 kg

DRUGS (10)
  1. CRESTOR [Suspect]
     Indication: BLOOD CHOLESTEROL INCREASED
     Dosage: 40 MG QD PO
     Route: 048
     Dates: start: 20040507, end: 20040514
  2. WELCHOL [Concomitant]
  3. ZETIA [Concomitant]
  4. SYNTHROID [Concomitant]
  5. CHROMIUM [Concomitant]
  6. SELENIUM TRACE METAL ADDITIVE [Concomitant]
  7. GARLIC [Concomitant]
  8. MULTI-VITAMINS [Concomitant]
  9. CLARITIN [Concomitant]
  10. LIPITOR [Concomitant]

REACTIONS (4)
  - ASTHENIA [None]
  - BLOOD CREATINE PHOSPHOKINASE INCREASED [None]
  - BLOOD THYROID STIMULATING HORMONE [None]
  - MYALGIA [None]
